FAERS Safety Report 14583285 (Version 1)
Quarter: 2018Q1

REPORT INFORMATION
  Report Type: Spontaneous
  Country: US (occurrence: US)
  Receive Date: 20180228
  Receipt Date: 20180228
  Transmission Date: 20180509
  Serious: No
  Sender: FDA-Public Use
  Company Number: US-TAIHO ONCOLOGY INC-EU-2018-00291

PATIENT
  Sex: Male

DRUGS (6)
  1. LANTUS [Concomitant]
     Active Substance: INSULIN GLARGINE
     Dosage: NI
  2. OXYCONTIN [Concomitant]
     Active Substance: OXYCODONE HYDROCHLORIDE
     Dosage: NI
  3. GABAPENTIN. [Concomitant]
     Active Substance: GABAPENTIN
     Dosage: NI
  4. UBIDECARENONE [Concomitant]
     Active Substance: UBIDECARENONE
     Dosage: NI
  5. LONSURF [Suspect]
     Active Substance: TIPIRACIL HYDROCHLORIDE\TRIFLURIDINE
     Indication: COLON CANCER
     Route: 048
     Dates: start: 20170403, end: 201705
  6. OXYCODONE [Concomitant]
     Active Substance: OXYCODONE
     Dosage: NI

REACTIONS (1)
  - Radiotherapy to liver [Unknown]

NARRATIVE: CASE EVENT DATE: 2017
